FAERS Safety Report 23407845 (Version 1)
Quarter: 2024Q1

REPORT INFORMATION
  Report Type: Report from Study
  Country: ES (occurrence: ES)
  Receive Date: 20240117
  Receipt Date: 20240117
  Transmission Date: 20240409
  Serious: Yes (Other)
  Sender: FDA-Public Use
  Company Number: ES-SA-SAC20240112000320

PATIENT
  Age: 63 Year
  Sex: Female
  Weight: 46 kg

DRUGS (8)
  1. ISATUXIMAB [Suspect]
     Active Substance: ISATUXIMAB
     Indication: Plasma cell myeloma
     Dosage: 460 MG
     Route: 042
     Dates: start: 20230413, end: 20230413
  2. ISATUXIMAB [Suspect]
     Active Substance: ISATUXIMAB
     Dosage: 460 MG
     Route: 042
     Dates: start: 20230801, end: 20230801
  3. BORTEZOMIB [Suspect]
     Active Substance: BORTEZOMIB
     Indication: Plasma cell myeloma
     Dosage: 1.75 MG
     Route: 058
     Dates: start: 20230413, end: 20230413
  4. BORTEZOMIB [Suspect]
     Active Substance: BORTEZOMIB
     Dosage: 1.75 MG
     Route: 058
     Dates: start: 20230728, end: 20230728
  5. DEXAMETHASONE [Suspect]
     Active Substance: DEXAMETHASONE
     Indication: Plasma cell myeloma
     Dosage: 40 MG, QW
     Route: 042
     Dates: start: 20230413, end: 20230413
  6. DEXAMETHASONE [Suspect]
     Active Substance: DEXAMETHASONE
     Dosage: 40 MG, QW
     Route: 042
     Dates: start: 20230729, end: 20230729
  7. IBERDOMIDE [Suspect]
     Active Substance: IBERDOMIDE
     Indication: Plasma cell myeloma
     Dosage: 1.6 MG
     Route: 048
     Dates: start: 20230413, end: 20230413
  8. IBERDOMIDE [Suspect]
     Active Substance: IBERDOMIDE
     Dosage: 1.6 MG
     Route: 048
     Dates: start: 20230807, end: 20230807

REACTIONS (1)
  - Rectal adenocarcinoma [Not Recovered/Not Resolved]

NARRATIVE: CASE EVENT DATE: 20231129
